FAERS Safety Report 15170992 (Version 3)
Quarter: 2018Q4

REPORT INFORMATION
  Report Type: Spontaneous
  Country: US (occurrence: US)
  Receive Date: 20180720
  Receipt Date: 20181011
  Transmission Date: 20190204
  Serious: Yes (Hospitalization, Other)
  Sender: FDA-Public Use
  Company Number: US-BAYER-2018-133223

PATIENT
  Age: 56 Year
  Sex: Male

DRUGS (2)
  1. KOGENATE FS [Suspect]
     Active Substance: ANTIHEMOPHILIC FACTOR, HUMAN RECOMBINANT
     Indication: FACTOR VIII DEFICIENCY
     Dosage: 4050 IU, TIW
     Route: 042
     Dates: start: 19910502
  2. KOGENATE FS [Suspect]
     Active Substance: ANTIHEMOPHILIC FACTOR, HUMAN RECOMBINANT
     Indication: FACTOR VIII DEFICIENCY
     Dosage: 4050 IU, TIW
     Route: 042
     Dates: start: 19910502

REACTIONS (3)
  - Pharyngeal haemorrhage [None]
  - Laryngeal neoplasm [None]
  - Haemorrhage [None]

NARRATIVE: CASE EVENT DATE: 20180712
